FAERS Safety Report 18469464 (Version 6)
Quarter: 2020Q4

REPORT INFORMATION
  Report Type: Spontaneous
  Country: ES (occurrence: ES)
  Receive Date: 20201105
  Receipt Date: 20201203
  Transmission Date: 20210114
  Serious: Yes (Death, Other)
  Sender: FDA-Public Use
  Company Number: ES-GILEAD-2020-0502925

PATIENT
  Age: 22 Year
  Sex: Female
  Weight: 60.4 kg

DRUGS (7)
  1. FLUCONAZOLE. [Concomitant]
     Active Substance: FLUCONAZOLE
     Dosage: UNK
     Dates: start: 20201030, end: 20201103
  2. POSACONAZOLE [Concomitant]
     Active Substance: POSACONAZOLE
     Dosage: UNK
     Dates: start: 20201102, end: 20201103
  3. SEPTRIN [Concomitant]
     Active Substance: SULFAMETHOXAZOLE\TRIMETHOPRIM
     Dosage: UNK
     Dates: start: 20201023, end: 20201028
  4. ALLOPURINOL. [Concomitant]
     Active Substance: ALLOPURINOL
     Dosage: UNK
     Dates: start: 20201023, end: 20201028
  5. YESCARTA [Suspect]
     Active Substance: AXICABTAGENE CILOLEUCEL
     Indication: PRIMARY MEDIASTINAL LARGE B-CELL LYMPHOMA
     Dosage: DOSIS UNICA
     Route: 041
     Dates: start: 20201029, end: 20201029
  6. ACYCLOVIR [ACICLOVIR] [Concomitant]
     Active Substance: ACYCLOVIR
     Dosage: 100MG/12H
     Dates: start: 20201023, end: 20201103
  7. OMEPRAZOLE. [Concomitant]
     Active Substance: OMEPRAZOLE
     Dosage: UNK
     Dates: start: 20201023, end: 20201028

REACTIONS (9)
  - Aphasia [Fatal]
  - Disorientation [Fatal]
  - Movement disorder [Fatal]
  - Cardiac failure [Fatal]
  - Intracranial pressure increased [Fatal]
  - Decerebrate posture [Fatal]
  - Immune effector cell-associated neurotoxicity syndrome [Fatal]
  - Seizure [Fatal]
  - Hyperthermia [Fatal]

NARRATIVE: CASE EVENT DATE: 20201102
